FAERS Safety Report 8408000-1 (Version None)
Quarter: 2012Q2

REPORT INFORMATION
  Report Type: 
  Country: None (occurrence: None)
  Receive Date: 20120604
  Receipt Date: 20120530
  Transmission Date: 20120825
  Serious: Yes (Hospitalization)
  Sender: FDA-Public Use
  Company Number: US-MERCK-1205USA05230

PATIENT
  Age: 66 Year
  Sex: Male
  Weight: 67 kg

DRUGS (10)
  1. MS CONTIN [Suspect]
     Indication: PAIN
     Route: 048
  2. VITAMINS (UNSPECIFIED) [Concomitant]
     Route: 065
  3. DIGESTIVE ENZYMES [Concomitant]
     Route: 065
  4. DECADRON [Suspect]
     Route: 048
  5. CALCIUM CARBONATE [Concomitant]
     Route: 065
  6. LUPRON [Concomitant]
     Route: 065
  7. VICODIN [Concomitant]
     Route: 065
  8. OMEPRAZOLE [Concomitant]
     Route: 065
  9. HYDROMORPHONE [Concomitant]
     Route: 065
  10. PROVENGE [Suspect]
     Indication: PROSTATE CANCER
     Route: 042
     Dates: start: 20120329, end: 20120329

REACTIONS (12)
  - ANAEMIA [None]
  - SINUS TACHYCARDIA [None]
  - ATELECTASIS [None]
  - ARTHRALGIA [None]
  - METASTASES TO CENTRAL NERVOUS SYSTEM [None]
  - BACK PAIN [None]
  - DELIRIUM [None]
  - GENERAL PHYSICAL HEALTH DETERIORATION [None]
  - ASTHENIA [None]
  - THROMBOCYTOPENIA [None]
  - HYPERGLYCAEMIA [None]
  - LYMPHANGIOSIS CARCINOMATOSA [None]
